FAERS Safety Report 9685366 (Version 1)
Quarter: 2013Q4

REPORT INFORMATION
  Report Type: Spontaneous
  Country: US (occurrence: None)
  Receive Date: 20131112
  Receipt Date: 20131112
  Transmission Date: 20140711
  Serious: No
  Sender: FDA-Public Use
  Company Number: None

PATIENT
  Age: 82 Year
  Sex: Male

DRUGS (2)
  1. CIPRO [Suspect]
     Indication: URINARY TRACT INFECTION
     Dosage: CIPROFLOXACIN BID
     Dates: start: 20130627
  2. CYMBALTA [Concomitant]
     Dates: start: 20130601

REACTIONS (1)
  - Serotonin syndrome [None]
